FAERS Safety Report 11594797 (Version 2)
Quarter: 2015Q4

REPORT INFORMATION
  Report Type: Spontaneous
  Country: EE (occurrence: EE)
  Receive Date: 20151005
  Receipt Date: 20151104
  Transmission Date: 20160304
  Serious: Yes (Hospitalization, Other)
  Sender: FDA-Public Use
  Company Number: EE-ABBVIE-15P-221-1473971-00

PATIENT
  Age: 67 Year
  Sex: Female
  Weight: 70 kg

DRUGS (4)
  1. DUODOPA [Suspect]
     Active Substance: CARBIDOPA\LEVODOPA
     Indication: PARKINSON^S DISEASE
     Dosage: 4.2 MH/H, EXTRA DOSE 4.5 ML, MORNING DOSE 8ML.
     Route: 050
     Dates: start: 20150502
  2. KETIPINOR [Concomitant]
     Indication: PRODUCT USED FOR UNKNOWN INDICATION
  3. SPASMED [Concomitant]
     Indication: PRODUCT USED FOR UNKNOWN INDICATION
  4. DIETARY SUPPLEMENT [Concomitant]
     Active Substance: DIETARY SUPPLEMENT
     Indication: PRODUCT USED FOR UNKNOWN INDICATION

REACTIONS (2)
  - Femur fracture [Recovering/Resolving]
  - Fall [Unknown]

NARRATIVE: CASE EVENT DATE: 20150922
